FAERS Safety Report 10221608 (Version 1)
Quarter: 2014Q2

REPORT INFORMATION
  Report Type: Report from Study
  Country: US (occurrence: US)
  Receive Date: 20140606
  Receipt Date: 20140606
  Transmission Date: 20141212
  Serious: Yes (Other)
  Sender: FDA-Public Use
  Company Number: US-JNJFOC-20140519872

PATIENT
  Age: 56 Year
  Sex: Female
  Weight: 117.03 kg

DRUGS (10)
  1. REMICADE [Suspect]
     Indication: RHEUMATOID ARTHRITIS
     Route: 042
     Dates: start: 2014
  2. OTHER THERAPEUTIC PRODUCT [Suspect]
     Indication: RHEUMATOID ARTHRITIS
     Route: 065
     Dates: start: 201401, end: 2014
  3. CLONAZEPAM [Concomitant]
     Indication: ANXIETY
     Route: 065
     Dates: start: 2000
  4. FLUOXETINE [Concomitant]
     Indication: DEPRESSION
     Route: 048
     Dates: start: 1999
  5. FOLIC ACID [Concomitant]
     Route: 048
     Dates: start: 201302
  6. METHOTREXATE [Concomitant]
     Route: 065
     Dates: start: 20140208
  7. LISINOPRIL [Concomitant]
     Indication: BLOOD PRESSURE
     Route: 065
     Dates: start: 2014
  8. LISINOPRIL [Concomitant]
     Indication: BLOOD PRESSURE
     Route: 065
     Dates: start: 2010
  9. RISPERIDONE [Concomitant]
     Indication: BIPOLAR DISORDER
     Route: 065
     Dates: start: 2000, end: 201405
  10. RISPERIDONE [Concomitant]
     Indication: BIPOLAR DISORDER
     Route: 065
     Dates: start: 201405

REACTIONS (11)
  - Gastrointestinal candidiasis [Not Recovered/Not Resolved]
  - Mania [Unknown]
  - Irritable bowel syndrome [Not Recovered/Not Resolved]
  - Cardiac failure congestive [Not Recovered/Not Resolved]
  - Adrenal adenoma [Not Recovered/Not Resolved]
  - Cushing^s syndrome [Not Recovered/Not Resolved]
  - Tendon rupture [Unknown]
  - Rheumatoid arthritis [Not Recovered/Not Resolved]
  - Contusion [Not Recovered/Not Resolved]
  - Plantar fasciitis [Not Recovered/Not Resolved]
  - Blood pressure increased [Not Recovered/Not Resolved]
